FAERS Safety Report 5556089-X (Version None)
Quarter: 2007Q4

REPORT INFORMATION
  Report Type: 
  Country: None (occurrence: None)
  Receive Date: 20071213
  Receipt Date: 20071210
  Transmission Date: 20080405
  Serious: Yes (Hospitalization)
  Sender: FDA-Public Use
  Company Number: PHNU2007DE04138

PATIENT
  Age: 48 Year
  Sex: Female

DRUGS (3)
  1. CONCOR COR [Concomitant]
     Dosage: 5 MG, BID
  2. L-THYROXINE [Concomitant]
  3. CO-DIOVAN FORTE [Suspect]
     Dates: start: 20050101

REACTIONS (7)
  - ARTHRITIS REACTIVE [None]
  - C-REACTIVE PROTEIN INCREASED [None]
  - INFLAMMATION [None]
  - MUSCULOSKELETAL STIFFNESS [None]
  - MYALGIA [None]
  - PAIN IN EXTREMITY [None]
  - PYREXIA [None]
